FAERS Safety Report 6807872-1 (Version None)
Quarter: 2010Q2

REPORT INFORMATION
  Report Type: 
  Country: None (occurrence: None)
  Receive Date: 20100629
  Receipt Date: 20090303
  Transmission Date: 20101027
  Serious: No
  Sender: FDA-Public Use
  Company Number: US-PFIZER INC-2009150129

PATIENT
  Sex: Male

DRUGS (1)
  1. ALDACTONE [Suspect]
     Indication: ASCITES
     Dosage: 100 MG, 1X/DAY

REACTIONS (1)
  - GYNAECOMASTIA [None]
